FAERS Safety Report 21670939 (Version 1)
Quarter: 2022Q4

REPORT INFORMATION
  Report Type: Spontaneous
  Country: US (occurrence: US)
  Receive Date: 20221202
  Receipt Date: 20221202
  Transmission Date: 20230113
  Serious: Yes (Other)
  Sender: FDA-Public Use
  Company Number: US-NOVOPROD-984364

PATIENT
  Age: 82 Year
  Sex: Male

DRUGS (1)
  1. LEVEMIR [Suspect]
     Active Substance: INSULIN DETEMIR
     Indication: Product used for unknown indication
     Dosage: UNK
     Route: 058
     Dates: start: 2002

REACTIONS (2)
  - Cholelithiasis [Not Recovered/Not Resolved]
  - Blood phosphorus abnormal [Unknown]

NARRATIVE: CASE EVENT DATE: 20221101
